FAERS Safety Report 5767306-5 (Version None)
Quarter: 2008Q2

REPORT INFORMATION
  Report Type: 
  Country: None (occurrence: None)
  Receive Date: 20080612
  Receipt Date: 20080609
  Transmission Date: 20081010
  Serious: Yes (Life-Threatening, Hospitalization)
  Sender: FDA-Public Use
  Company Number: FR-WYE-G01660008

PATIENT
  Sex: Male
  Weight: 15.9 kg

DRUGS (8)
  1. ADVIL [Suspect]
     Indication: RHINORRHOEA
     Route: 048
     Dates: start: 20071215, end: 20071220
  2. ADVIL [Suspect]
     Indication: COUGH
  3. NIFLUMIC ACID [Suspect]
     Indication: RHINORRHOEA
     Dosage: UNKNOWN
     Dates: start: 20071215, end: 20071201
  4. NIFLUMIC ACID [Suspect]
     Indication: COUGH
  5. PNEUMOREL [Suspect]
     Dosage: UNKNOWN
     Route: 048
     Dates: start: 20071218, end: 20071220
  6. DOLIPRANE [Concomitant]
     Indication: COUGH
     Dosage: UNKNOWN
     Route: 048
     Dates: start: 20071215
  7. DOLIPRANE [Concomitant]
     Indication: RHINORRHOEA
  8. CELESTONE [Suspect]
     Route: 048
     Dates: start: 20071218, end: 20071220

REACTIONS (9)
  - CARDIAC MURMUR FUNCTIONAL [None]
  - GASTRIC MUCOSAL LESION [None]
  - GASTRIC ULCER [None]
  - HAEMATEMESIS [None]
  - HAEMORRHAGIC ANAEMIA [None]
  - MELAENA [None]
  - PYREXIA [None]
  - THIRST [None]
  - VOMITING [None]
